FAERS Safety Report 24637379 (Version 2)
Quarter: 2025Q2

REPORT INFORMATION
  Report Type: Report from Study
  Country: BE (occurrence: BE)
  Receive Date: 20241119
  Receipt Date: 20250506
  Transmission Date: 20250716
  Serious: No
  Sender: ALNYLAM PHARMACEUTICALS
  Company Number: BE-ALNYLAM PHARMACEUTICALS, INC.-ALN-2024-006428

PATIENT

DRUGS (1)
  1. OXLUMO [Suspect]
     Active Substance: LUMASIRAN
     Indication: Primary hyperoxaluria
     Route: 065

REACTIONS (1)
  - Catheter management [Unknown]
